FAERS Safety Report 5633651-7 (Version None)
Quarter: 2008Q1

REPORT INFORMATION
  Report Type: 
  Country: None (occurrence: None)
  Receive Date: 20080221
  Receipt Date: 20080211
  Transmission Date: 20080703
  Serious: Yes (Other)
  Sender: FDA-Public Use
  Company Number: US-PFIZER INC-2008012972

PATIENT
  Sex: Female
  Weight: 68.181 kg

DRUGS (2)
  1. LIPITOR [Suspect]
     Indication: BLOOD CHOLESTEROL INCREASED
     Dates: start: 20000101, end: 20080206
  2. PREVACID [Concomitant]

REACTIONS (11)
  - DISABILITY [None]
  - EYE HAEMORRHAGE [None]
  - HYPOACUSIS [None]
  - ILL-DEFINED DISORDER [None]
  - MUSCULOSKELETAL CHEST PAIN [None]
  - MUSCULOSKELETAL PAIN [None]
  - NERVOUSNESS [None]
  - PAIN IN EXTREMITY [None]
  - RETINAL DISORDER [None]
  - ROTATOR CUFF SYNDROME [None]
  - VISUAL ACUITY REDUCED [None]
